FAERS Safety Report 4843155-7 (Version None)
Quarter: 2005Q4

REPORT INFORMATION
  Report Type: 
  Country: None (occurrence: None)
  Receive Date: 20051201
  Receipt Date: 20051114
  Transmission Date: 20060501
  Serious: Yes (Hospitalization, Congenital Anomaly, Other)
  Sender: FDA-Public Use
  Company Number: DK-ABBOTT-05P-044-0317218-00

PATIENT
  Sex: Male

DRUGS (1)
  1. DEPAKENE [Suspect]
     Indication: DRUG EXPOSURE DURING PREGNANCY

REACTIONS (16)
  - APNOEA [None]
  - BLOOD GLUCOSE DECREASED [None]
  - CONGENITAL FOOT MALFORMATION [None]
  - CONGENITAL HAND MALFORMATION [None]
  - DEVELOPMENTAL DELAY [None]
  - DIAPHRAGMATIC HERNIA [None]
  - FACIAL DYSMORPHISM [None]
  - GASTROINTESTINAL DISORDER POSTOPERATIVE [None]
  - HYPOACUSIS [None]
  - INCREASED BRONCHIAL SECRETION [None]
  - INGUINAL HERNIA [None]
  - JAUNDICE [None]
  - MOTOR DYSFUNCTION [None]
  - SKIN DISORDER [None]
  - TRACHEAL DISORDER [None]
  - UNEVALUABLE EVENT [None]
